FAERS Safety Report 22132974 (Version 3)
Quarter: 2023Q2

REPORT INFORMATION
  Report Type: Spontaneous
  Country: US (occurrence: US)
  Receive Date: 20230323
  Receipt Date: 20230526
  Transmission Date: 20230722
  Serious: No
  Sender: FDA-Public Use
  Company Number: US-009507513-2302USA006981

PATIENT
  Age: 38 Year
  Sex: Female

DRUGS (3)
  1. INTRON A [Suspect]
     Active Substance: INTERFERON ALFA-2B
     Indication: Hypereosinophilic syndrome
     Dosage: 1 MU DAILY
  2. STROMECTOL [Suspect]
     Active Substance: IVERMECTIN
     Indication: Prophylaxis
     Dosage: 150 MICRO-G/KG PER DOSE
     Route: 048
  3. STROMECTOL [Suspect]
     Active Substance: IVERMECTIN
     Dosage: 150 MICRO-G/KG PER DOSE
     Route: 048

REACTIONS (3)
  - Therapy partial responder [Unknown]
  - Off label use [Unknown]
  - Product use in unapproved indication [Unknown]
